FAERS Safety Report 9414220 (Version 2)
Quarter: 2013Q3

REPORT INFORMATION
  Report Type: Spontaneous
  Country: ES (occurrence: ES)
  Receive Date: 20130723
  Receipt Date: 20130729
  Transmission Date: 20140515
  Serious: Yes (Death, Other)
  Sender: FDA-Public Use
  Company Number: ES-RANBAXY-2013RR-71452

PATIENT
  Age: 76 Year
  Sex: Female

DRUGS (4)
  1. ACICLOVIR [Suspect]
     Indication: INFECTED SKIN ULCER
     Dosage: UNK
     Route: 065
  2. VANCOMYCIN [Suspect]
     Indication: INFECTED SKIN ULCER
     Dosage: UNK
     Route: 065
  3. PANTOPRAZOL [Suspect]
     Indication: PRODUCT USED FOR UNKNOWN INDICATION
     Dosage: UNK
     Route: 065
  4. AMIKACIN [Suspect]
     Indication: INFECTED SKIN ULCER
     Dosage: UNK
     Route: 065

REACTIONS (2)
  - Hypomagnesaemia [Recovered/Resolved]
  - Back pain [Recovered/Resolved]
